FAERS Safety Report 8304856-1 (Version None)
Quarter: 2012Q2

REPORT INFORMATION
  Report Type: 
  Country: None (occurrence: None)
  Receive Date: 20120423
  Receipt Date: 20120421
  Transmission Date: 20120825
  Serious: No
  Sender: FDA-Public Use
  Company Number: US-PFIZER INC-2012098713

PATIENT
  Sex: Male

DRUGS (3)
  1. METFORMIN [Concomitant]
     Indication: DIABETES MELLITUS
     Dosage: 2000 MG,DAILY
  2. LYRICA [Suspect]
     Indication: NEUROPATHY PERIPHERAL
     Dosage: UNK
  3. GABAPENTIN [Suspect]
     Indication: NEUROPATHY PERIPHERAL
     Dosage: TWO TABLETS THREE TIMES A DAY
     Route: 048

REACTIONS (1)
  - DIZZINESS [None]
